FAERS Safety Report 10586202 (Version 2)
Quarter: 2014Q4

REPORT INFORMATION
  Report Type: Report from Study
  Country: MX (occurrence: MX)
  Receive Date: 20141116
  Receipt Date: 20141218
  Transmission Date: 20150529
  Serious: Yes (Death, Other)
  Sender: FDA-Public Use
  Company Number: PHHY2014MX148623

PATIENT
  Age: 31 Year
  Sex: Female

DRUGS (5)
  1. CYTARABINE. [Concomitant]
     Active Substance: CYTARABINE
     Indication: THERAPEUTIC RESPONSE DECREASED
     Dosage: UNK
     Route: 042
     Dates: start: 20141001, end: 20141009
  2. L ASPARAGINASE [Concomitant]
     Active Substance: ASPARAGINASE
     Indication: THERAPEUTIC RESPONSE DECREASED
     Dosage: UNK
     Route: 042
     Dates: start: 20141001, end: 20141009
  3. GLIVEC [Suspect]
     Active Substance: IMATINIB MESYLATE
     Indication: ACUTE LYMPHOCYTIC LEUKAEMIA
     Dosage: 400 MG, UNK
     Route: 048
     Dates: start: 20141001
  4. IDARUBICINA [Concomitant]
     Indication: THERAPEUTIC RESPONSE DECREASED
     Dosage: UNK
     Route: 042
     Dates: start: 20141001, end: 20141009
  5. DEXA//DEXAMETHASONE [Concomitant]
     Indication: THERAPEUTIC RESPONSE DECREASED
     Dosage: UNK
     Route: 042
     Dates: start: 20141001, end: 20141009

REACTIONS (2)
  - Septic shock [Fatal]
  - Febrile neutropenia [Fatal]

NARRATIVE: CASE EVENT DATE: 20141013
